FAERS Safety Report 5125630-3 (Version None)
Quarter: 2006Q4

REPORT INFORMATION
  Report Type: 
  Country: None (occurrence: None)
  Receive Date: 20061012
  Receipt Date: 20040924
  Transmission Date: 20070319
  Serious: Yes (Hospitalization)
  Sender: FDA-Public Use
  Company Number: 2004AP05041

PATIENT
  Age: 18655 Day
  Sex: Female

DRUGS (16)
  1. IRESSA [Suspect]
     Indication: OROPHARYNGEAL CANCER RECURRENT
     Route: 048
     Dates: start: 20040603
  2. DURAGESIC-100 [Concomitant]
     Indication: PAIN
     Dates: start: 20030930
  3. MORFIN [Concomitant]
     Indication: PAIN
     Route: 048
     Dates: start: 20030930
  4. ACETAMINOPHEN [Concomitant]
     Indication: PAIN
     Route: 048
  5. NEURONTIN [Concomitant]
     Indication: PAIN
     Route: 048
     Dates: start: 20040401
  6. SAROTEN [Concomitant]
     Indication: PAIN
     Route: 048
     Dates: start: 20040401
  7. LAXOBERAL [Concomitant]
     Indication: CONSTIPATION
     Route: 048
     Dates: start: 20030930
  8. LORABID [Concomitant]
     Indication: INFECTION
     Route: 048
     Dates: start: 20040530
  9. LOSEC [Concomitant]
     Indication: GASTRITIS
     Route: 048
     Dates: start: 20040607
  10. XYLOCAINE [Concomitant]
     Indication: PHARYNGOLARYNGEAL PAIN
  11. DIFLUCAN [Concomitant]
     Indication: ANTIFUNGAL PROPHYLAXIS
     Route: 048
  12. LACTULOSE [Concomitant]
     Indication: CONSTIPATION
     Route: 048
  13. ACETYLCYSTEINE [Concomitant]
     Route: 048
  14. FUROSEMIDE [Concomitant]
     Indication: FLUID RETENTION
     Route: 048
  15. PANTOPRAZOLE SODIUM [Concomitant]
     Indication: PROPHYLAXIS
     Route: 042
     Dates: start: 20040602, end: 20040607
  16. ZOLPIDEM TARTRATE [Concomitant]
     Indication: INSOMNIA
     Route: 048

REACTIONS (3)
  - HAEMOGLOBIN DECREASED [None]
  - TUMOUR HAEMORRHAGE [None]
  - WHITE BLOOD CELL COUNT INCREASED [None]
